FAERS Safety Report 4375912-8 (Version None)
Quarter: 2004Q2

REPORT INFORMATION
  Report Type: 
  Country: None (occurrence: None)
  Receive Date: 20040607
  Receipt Date: 20040517
  Transmission Date: 20050107
  Serious: No
  Sender: FDA-Public Use
  Company Number: EWC040539371

PATIENT
  Age: 24 Year
  Sex: Female

DRUGS (1)
  1. ZYPREXA [Suspect]
     Indication: DEPRESSION
     Dosage: 5 MG/1 DAY
     Dates: start: 20040509

REACTIONS (5)
  - ABDOMINAL PAIN [None]
  - DYSURIA [None]
  - FEELING COLD [None]
  - SKIN DISCOLOURATION [None]
  - SWELLING [None]
